FAERS Safety Report 5680206-4 (Version None)
Quarter: 2008Q1

REPORT INFORMATION
  Report Type: 
  Country: None (occurrence: None)
  Receive Date: 20080326
  Receipt Date: 20080313
  Transmission Date: 20080703
  Serious: Yes (Other)
  Sender: FDA-Public Use
  Company Number: PHEH2008US02785

PATIENT
  Sex: Female

DRUGS (3)
  1. NEULASTA [Concomitant]
  2. NEUPOGEN [Concomitant]
  3. CYCLOSPORINE [Suspect]
     Indication: RENAL TRANSPLANT

REACTIONS (1)
  - NEUTROPENIA [None]
